FAERS Safety Report 9326103 (Version 1)
Quarter: 2013Q2

REPORT INFORMATION
  Report Type: Spontaneous
  Country: US (occurrence: None)
  Receive Date: 20130603
  Receipt Date: 20130603
  Transmission Date: 20140414
  Serious: Yes (Hospitalization, Other)
  Sender: FDA-Public Use
  Company Number: None

PATIENT
  Age: 42 Year
  Sex: Female
  Weight: 66.23 kg

DRUGS (1)
  1. LATISSE [Suspect]
     Indication: CELLULITIS ORBITAL
     Dosage: 1
     Route: 061
     Dates: start: 20130326, end: 20130405

REACTIONS (3)
  - Laceration [None]
  - Impaired healing [None]
  - Cellulitis orbital [None]
